FAERS Safety Report 19020177 (Version 1)
Quarter: 2021Q1

REPORT INFORMATION
  Report Type: Spontaneous
  Country: QA (occurrence: QA)
  Receive Date: 20210317
  Receipt Date: 20210317
  Transmission Date: 20210420
  Serious: Yes (Hospitalization)
  Sender: FDA-Public Use
  Company Number: QA-IPCA LABORATORIES LIMITED-IPC-2021-QA-000659

PATIENT

DRUGS (11)
  1. DAPTOMYCIN. [Concomitant]
     Active Substance: DAPTOMYCIN
     Indication: PRODUCT USED FOR UNKNOWN INDICATION
     Dosage: UNK
     Route: 065
  2. WARFARIN [Suspect]
     Active Substance: WARFARIN
     Indication: ANTICOAGULANT THERAPY
     Dosage: 7.5 MILLIGRAM, QD
     Route: 065
     Dates: start: 2013
  3. METOPROLOL. [Concomitant]
     Active Substance: METOPROLOL
     Indication: PRODUCT USED FOR UNKNOWN INDICATION
     Dosage: 50 MILLIGRAM, QD
     Route: 065
  4. WARFARIN [Interacting]
     Active Substance: WARFARIN
     Dosage: 30 MILLIGRAM, QD
     Route: 065
  5. GENTAMICIN. [Concomitant]
     Active Substance: GENTAMICIN
     Indication: PRODUCT USED FOR UNKNOWN INDICATION
     Dosage: 80 MILLIGRAM, QD
     Route: 065
  6. WARFARIN [Interacting]
     Active Substance: WARFARIN
     Dosage: 15 MILLIGRAM, QD
     Route: 065
  7. WARFARIN [Interacting]
     Active Substance: WARFARIN
     Dosage: 80 MILLIGRAM, QD
     Route: 065
  8. CEFTRIAXONE. [Concomitant]
     Active Substance: CEFTRIAXONE
     Indication: PRODUCT USED FOR UNKNOWN INDICATION
     Dosage: 2 GRAM, QD
     Route: 065
  9. ENOXAPARIN [Concomitant]
     Active Substance: ENOXAPARIN
     Indication: PRODUCT USED FOR UNKNOWN INDICATION
     Dosage: 1 MILLIGRAM/KILOGRAM, BID
     Route: 065
  10. RIFAMPIN. [Interacting]
     Active Substance: RIFAMPIN
     Indication: TUBERCULOSIS
     Dosage: 600 MILLIGRAM, QD
     Route: 065
  11. VANCOMYCIN [Concomitant]
     Active Substance: VANCOMYCIN
     Indication: PRODUCT USED FOR UNKNOWN INDICATION
     Dosage: 1800 MILLIGRAM, QD
     Route: 065

REACTIONS (3)
  - Anticoagulation drug level above therapeutic [Recovered/Resolved]
  - Anticoagulation drug level below therapeutic [Recovered/Resolved]
  - Drug interaction [Unknown]
